FAERS Safety Report 7323853-6 (Version None)
Quarter: 2011Q1

REPORT INFORMATION
  Report Type: 
  Country: None (occurrence: None)
  Receive Date: 20110301
  Receipt Date: 20110223
  Transmission Date: 20110831
  Serious: Yes (Other)
  Sender: FDA-Public Use
  Company Number: A0915070A

PATIENT
  Age: 56 Year
  Sex: Female

DRUGS (5)
  1. ALPHAGAN [Concomitant]
  2. XALATAN [Concomitant]
  3. ADVAIR DISKUS 100/50 [Suspect]
     Indication: ASTHMA
     Dosage: 1PUFF TWICE PER DAY
     Route: 055
     Dates: end: 20110222
  4. SINGULAIR [Concomitant]
  5. NORVASC [Concomitant]

REACTIONS (3)
  - OPEN ANGLE GLAUCOMA [None]
  - DRUG ADMINISTRATION ERROR [None]
  - OPTIC NERVE DISORDER [None]
